FAERS Safety Report 14280295 (Version 1)
Quarter: 2017Q4

REPORT INFORMATION
  Report Type: Report from Study
  Country: US (occurrence: US)
  Receive Date: 20171213
  Receipt Date: 20171213
  Transmission Date: 20180321
  Serious: Yes (Hospitalization)
  Sender: FDA-Public Use
  Company Number: US-SHIRE-US201733165

PATIENT
  Age: 3 Year
  Sex: Male

DRUGS (19)
  1. GLUTAMINE [Concomitant]
     Active Substance: GLUTAMINE
     Indication: SUPPLEMENTATION THERAPY
  2. CATHFLO ACTIVASE [Concomitant]
     Active Substance: ALTEPLASE
     Indication: CATHETER MANAGEMENT
  3. TYLENOL [Concomitant]
     Active Substance: ACETAMINOPHEN
     Indication: PAIN
  4. VITAMIN D3 [Concomitant]
     Active Substance: CHOLECALCIFEROL
     Indication: SUPPLEMENTATION THERAPY
  5. MOTRIN [Concomitant]
     Active Substance: IBUPROFEN
     Indication: PAIN
  6. FLAGYL [Concomitant]
     Active Substance: METRONIDAZOLE\METRONIDAZOLE HYDROCHLORIDE
     Indication: OVERGROWTH BACTERIAL
  7. ZOFRAN [Concomitant]
     Active Substance: ONDANSETRON HYDROCHLORIDE
     Indication: NAUSEA
  8. TYLENOL [Concomitant]
     Active Substance: ACETAMINOPHEN
     Indication: PYREXIA
  9. SALINE                             /00075401/ [Concomitant]
     Active Substance: SODIUM CHLORIDE
     Indication: CATHETER MANAGEMENT
  10. ZYRTEC [Concomitant]
     Active Substance: CETIRIZINE HYDROCHLORIDE
     Indication: PRODUCT USED FOR UNKNOWN INDICATION
  11. SODIUM CHLORIDE. [Concomitant]
     Active Substance: SODIUM CHLORIDE
     Indication: DIARRHOEA
  12. HEPARIN SODIUM. [Concomitant]
     Active Substance: HEPARIN SODIUM
     Indication: CATHETER MANAGEMENT
  13. RIFAXIMIN. [Concomitant]
     Active Substance: RIFAXIMIN
     Indication: OVERGROWTH BACTERIAL
  14. EPIPEN JR [Concomitant]
     Active Substance: EPINEPHRINE
     Indication: FOOD ALLERGY
  15. ALCOHOL. [Concomitant]
     Active Substance: ALCOHOL
     Indication: CATHETER MANAGEMENT
  16. PROBIOTIC                          /06395501/ [Concomitant]
     Active Substance: BIFIDOBACTERIUM ANIMALIS LACTIS
     Indication: SUPPLEMENTATION THERAPY
  17. MYLANTA [Concomitant]
     Active Substance: ALUMINUM HYDROXIDE\DIMETHICONE\MAGNESIUM HYDROXIDE
     Indication: DERMATITIS DIAPER
  18. TEDUGLUTIDE [Suspect]
     Active Substance: TEDUGLUTIDE
     Indication: SHORT-BOWEL SYNDROME
     Dosage: UNK, 1X/DAY:QD
     Route: 065
     Dates: start: 20160729
  19. PROTONIX                           /00661201/ [Concomitant]
     Active Substance: OMEPRAZOLE
     Indication: GASTROOESOPHAGEAL REFLUX DISEASE

REACTIONS (1)
  - Device breakage [Recovered/Resolved]

NARRATIVE: CASE EVENT DATE: 20171128
